FAERS Safety Report 7637051-X (Version None)
Quarter: 2011Q3

REPORT INFORMATION
  Report Type: 
  Country: None (occurrence: None)
  Receive Date: 20110726
  Receipt Date: 20110621
  Transmission Date: 20111222
  Serious: No
  Sender: FDA-Public Use
  Company Number: US-BAYER-2011-054988

PATIENT
  Age: 81 Year
  Sex: Female
  Weight: 91 kg

DRUGS (3)
  1. HEART MEDICINE [Suspect]
  2. ALEVE (CAPLET) [Suspect]
     Dosage: 1 DF, BID
     Route: 048
     Dates: start: 20110614, end: 20110621
  3. METFORMIN HCL [Concomitant]
     Indication: SCIATICA

REACTIONS (1)
  - SCIATICA [None]
